FAERS Safety Report 19888599 (Version 1)
Quarter: 2021Q3

REPORT INFORMATION
  Report Type: Spontaneous
  Country: US (occurrence: US)
  Receive Date: 20210927
  Receipt Date: 20210927
  Transmission Date: 20211014
  Serious: No
  Sender: FDA-Public Use
  Company Number: None

PATIENT
  Age: 51 Year
  Sex: Female
  Weight: 62.1 kg

DRUGS (11)
  1. DULERA [Concomitant]
     Active Substance: FORMOTEROL FUMARATE DIHYDRATE\MOMETASONE FUROATE
  2. MUCINEX [Concomitant]
     Active Substance: GUAIFENESIN
  3. VITAMIN D3 [Concomitant]
     Active Substance: CHOLECALCIFEROL
  4. VITAMIN B12 [Concomitant]
     Active Substance: CYANOCOBALAMIN
  5. TRAMADOL. [Concomitant]
     Active Substance: TRAMADOL
  6. DYMISTA [Concomitant]
     Active Substance: AZELASTINE HYDROCHLORIDE\FLUTICASONE PROPIONATE
  7. RESTASIS [Concomitant]
     Active Substance: CYCLOSPORINE
  8. FENTANYL TRANSDERMAL SYSTEM [Suspect]
     Active Substance: FENTANYL
     Indication: PAIN
     Dosage: QUANTITY:10 PATCH(ES);OTHER FREQUENCY:Q 72 HOURS;?
     Route: 062
  9. SYNTHROID [Concomitant]
     Active Substance: LEVOTHYROXINE SODIUM
  10. LAMOTRIGINE. [Concomitant]
     Active Substance: LAMOTRIGINE
  11. CYMBALTA [Concomitant]
     Active Substance: DULOXETINE HYDROCHLORIDE

REACTIONS (12)
  - Product substitution issue [None]
  - Nausea [None]
  - Headache [None]
  - Dysarthria [None]
  - Syncope [None]
  - Pain [None]
  - Therapy interrupted [None]
  - Feeling abnormal [None]
  - Somnolence [None]
  - Impaired driving ability [None]
  - Product adhesion issue [None]
  - Dizziness [None]

NARRATIVE: CASE EVENT DATE: 20210927
